FAERS Safety Report 5852586-8 (Version None)
Quarter: 2008Q3

REPORT INFORMATION
  Report Type: 
  Country: None (occurrence: None)
  Receive Date: 20080820
  Receipt Date: 20080820
  Transmission Date: 20090109
  Serious: Yes (Hospitalization)
  Sender: FDA-Public Use
  Company Number: None

PATIENT
  Sex: Female
  Weight: 46 kg

DRUGS (2)
  1. BEVACIZUMAB [Suspect]
     Indication: RENAL CELL CARCINOMA
     Dosage: 15 MG/KG Q 21 DAYS IV
     Route: 042
     Dates: start: 20080528
  2. BORTEZOMIB [Suspect]
     Indication: RENAL CELL CARCINOMA
     Dosage: 1.8 MG/M2 DAY 1 AND A Q 21 IV
     Route: 042
     Dates: start: 20080528

REACTIONS (4)
  - ABDOMINAL PAIN [None]
  - NAUSEA [None]
  - REFUSAL OF TREATMENT BY PATIENT [None]
  - VOMITING [None]
